FAERS Safety Report 18485969 (Version 1)
Quarter: 2020Q4

REPORT INFORMATION
  Report Type: Spontaneous
  Country: US (occurrence: US)
  Receive Date: 20201110
  Receipt Date: 20201110
  Transmission Date: 20210114
  Serious: Yes (Death)
  Sender: FDA-Public Use
  Company Number: None

PATIENT
  Age: 66 Year
  Sex: Male
  Weight: 123 kg

DRUGS (1)
  1. APIXABAN (APIXABAN 5MG TAB) [Suspect]
     Active Substance: APIXABAN
     Route: 048
     Dates: start: 20190401, end: 20200515

REACTIONS (5)
  - Subdural haematoma [None]
  - Unresponsive to stimuli [None]
  - Brain midline shift [None]
  - Cerebral haemorrhage [None]
  - Haemorrhage [None]

NARRATIVE: CASE EVENT DATE: 20200515
